APPROVED DRUG PRODUCT: ACETAMINOPHEN, ASPIRIN AND CAFFEINE
Active Ingredient: ACETAMINOPHEN; ASPIRIN; CAFFEINE
Strength: 250MG;250MG;65MG
Dosage Form/Route: TABLET;ORAL
Application: A075794 | Product #001
Applicant: L PERRIGO CO
Approved: Nov 26, 2001 | RLD: No | RS: No | Type: OTC